FAERS Safety Report 21399283 (Version 3)
Quarter: 2023Q4

REPORT INFORMATION
  Report Type: Spontaneous
  Country: FR (occurrence: FR)
  Receive Date: 20221001
  Receipt Date: 20231210
  Transmission Date: 20240109
  Serious: Yes (Hospitalization, Other)
  Sender: FDA-Public Use
  Company Number: FR-ROCHE-3177023

PATIENT
  Age: 55 Year
  Sex: Male

DRUGS (24)
  1. CAPECITABINE [Suspect]
     Active Substance: CAPECITABINE
     Indication: Colorectal cancer
     Dosage: 2000 MILLIGRAM, TWO TIMES A DAY
     Route: 048
     Dates: start: 20220303, end: 20220725
  2. CAPECITABINE [Suspect]
     Active Substance: CAPECITABINE
     Dosage: UNK (CYCLE 07 )
     Route: 065
     Dates: start: 20220725
  3. CAPECITABINE [Suspect]
     Active Substance: CAPECITABINE
     Dosage: 4000 MILLIGRAM
     Route: 065
     Dates: start: 20220506
  4. CAPECITABINE [Suspect]
     Active Substance: CAPECITABINE
     Dosage: UNK(CYCLE 07)
     Route: 048
     Dates: start: 20220711
  5. OXALIPLATIN [Suspect]
     Active Substance: OXALIPLATIN
     Indication: Colorectal cancer
     Dosage: 260 MILLIGRAM
     Route: 065
     Dates: start: 20220303
  6. OXALIPLATIN [Suspect]
     Active Substance: OXALIPLATIN
     Dosage: UNK (CYCLE 05)
     Route: 065
     Dates: start: 20220530
  7. OXALIPLATIN [Suspect]
     Active Substance: OXALIPLATIN
     Dosage: 260 MILLIGRAM
     Route: 065
     Dates: start: 20220506
  8. DEVICE\YTTRIUM Y-90 [Suspect]
     Active Substance: DEVICE\YTTRIUM Y-90
     Indication: Colorectal cancer
     Dosage: UNK
     Route: 065
     Dates: start: 20220316
  9. DEVICE\YTTRIUM Y-90 [Suspect]
     Active Substance: DEVICE\YTTRIUM Y-90
     Dosage: UNK
     Route: 065
     Dates: start: 20220415
  10. ATEZOLIZUMAB [Suspect]
     Active Substance: ATEZOLIZUMAB
     Indication: Colorectal cancer
     Dosage: 1200 MILLIGRAM (1200 MILLIGRAM(INTRAVENOUS DRIP))
     Route: 042
     Dates: start: 20220303
  11. ATEZOLIZUMAB [Suspect]
     Active Substance: ATEZOLIZUMAB
     Dosage: UNK (CYCLE 07)
     Route: 065
     Dates: start: 20220711
  12. ATEZOLIZUMAB [Suspect]
     Active Substance: ATEZOLIZUMAB
     Dosage: 1200 MILLIGRAM (1200 MILLIGRAM(INTRAVENOUS DRIP))4TH CYCLE
     Route: 042
     Dates: start: 20220506
  13. BEVACIZUMAB [Suspect]
     Active Substance: BEVACIZUMAB
     Indication: Colorectal cancer
     Dosage: 600 MILLIGRAM(CYCLE 07)
     Route: 042
     Dates: start: 20220711
  14. BEVACIZUMAB [Suspect]
     Active Substance: BEVACIZUMAB
     Dosage: UNK,CYCLE 07
     Route: 065
     Dates: start: 20220711
  15. BEVACIZUMAB [Suspect]
     Active Substance: BEVACIZUMAB
     Dosage: 612.5 MILLIGRAM,4TH CYCLE
     Route: 065
     Dates: start: 20220506
  16. ORALAIR [Concomitant]
     Active Substance: ANTHOXANTHUM ODORATUM POLLEN\DACTYLIS GLOMERATA POLLEN\LOLIUM PERENNE POLLEN\PHLEUM PRATENSE POLLEN\
     Indication: Asthma
     Dosage: UNK
     Route: 065
     Dates: start: 20211209
  17. VERAPAMIL [Concomitant]
     Active Substance: VERAPAMIL HYDROCHLORIDE
     Indication: Hypertension
     Dosage: 240 MILLIGRAM
     Route: 065
  18. ATORVASTATIN [Concomitant]
     Active Substance: ATORVASTATIN
     Indication: Dyslipidaemia
     Dosage: 40 MILLIGRAM
     Route: 065
  19. SERETIDE [Concomitant]
     Active Substance: FLUTICASONE PROPIONATE\SALMETEROL XINAFOATE
     Indication: Asthma
     Dosage: UNK (500/50 MCG)
     Route: 065
  20. ACARIZAX [Concomitant]
     Active Substance: DERMATOPHAGOIDES FARINAE\DERMATOPHAGOIDES PTERONYSSINUS
     Indication: Asthma
     Dosage: UNK
     Route: 065
     Dates: start: 20211209
  21. CETIRIZINE HYDROCHLORIDE [Concomitant]
     Active Substance: CETIRIZINE HYDROCHLORIDE
     Indication: Asthma
     Dosage: 10 MILLIGRAM
     Route: 065
  22. ALBUTEROL [Concomitant]
     Active Substance: ALBUTEROL
     Indication: Asthma
     Dosage: 100 MICROGRAM
     Route: 065
  23. RAMIPRIL [Concomitant]
     Active Substance: RAMIPRIL
     Indication: Hypertension
     Dosage: 5 MILLIGRAM
     Route: 065
  24. SINGULAIR [Concomitant]
     Active Substance: MONTELUKAST SODIUM
     Indication: Asthma
     Dosage: 100 MILLIGRAM
     Route: 065

REACTIONS (6)
  - Venoocclusive liver disease [Recovering/Resolving]
  - Portal vein thrombosis [Unknown]
  - Hepatic cytolysis [Unknown]
  - Hepatocellular injury [Unknown]
  - Transaminases increased [Unknown]
  - Cholestasis [Unknown]

NARRATIVE: CASE EVENT DATE: 20220703
